FAERS Safety Report 11896677 (Version 1)
Quarter: 2016Q1

REPORT INFORMATION
  Report Type: Spontaneous
  Country: US (occurrence: US)
  Receive Date: 20160107
  Receipt Date: 20160107
  Transmission Date: 20160526
  Serious: No
  Sender: FDA-Public Use
  Company Number: US-TEVA-623871USA

PATIENT

DRUGS (2)
  1. HYDREA [Interacting]
     Active Substance: HYDROXYUREA
     Route: 065
  2. AZILECT [Suspect]
     Active Substance: RASAGILINE MESYLATE
     Route: 065

REACTIONS (2)
  - Drug interaction [Unknown]
  - Thrombocytopenia [Unknown]
